FAERS Safety Report 4334535-7 (Version None)
Quarter: 2004Q2

REPORT INFORMATION
  Report Type: 
  Country: None (occurrence: None)
  Receive Date: 20040407
  Receipt Date: 20040325
  Transmission Date: 20050107
  Serious: Yes (Death)
  Sender: FDA-Public Use
  Company Number: GB-GLAXOSMITHKLINE-B0328101A

PATIENT
  Age: 44 Year
  Sex: Female

DRUGS (5)
  1. MELPHALAN [Suspect]
     Indication: BONE MARROW TRANSPLANT
     Dosage: 140MGM2 CYCLIC
     Route: 065
  2. MABCAMPATH [Suspect]
     Indication: BONE MARROW TRANSPLANT
     Dosage: 20MGD CYCLIC
     Route: 065
  3. FLUDARABINE PHOSPHATE [Suspect]
     Indication: BONE MARROW TRANSPLANT
     Dosage: 30MGM2 CYCLIC
     Route: 065
  4. CYCLOSPORINE [Suspect]
     Indication: INFECTION PROPHYLAXIS
     Route: 065
  5. NO CONCURRENT MEDICATIONS [Concomitant]

REACTIONS (4)
  - ADENOVIRUS INFECTION [None]
  - GRAFT VERSUS HOST DISEASE [None]
  - HEPATIC FAILURE [None]
  - HEPATITIS VIRAL [None]
